FAERS Safety Report 20709643 (Version 1)
Quarter: 2022Q2

REPORT INFORMATION
  Report Type: Spontaneous
  Country: US (occurrence: None)
  Receive Date: 20220413
  Receipt Date: 20220413
  Transmission Date: 20220721
  Serious: Yes (Hospitalization, Disabling, Other)
  Sender: FDA-Public Use
  Company Number: None

PATIENT
  Age: 30 Year
  Sex: Female
  Weight: 59.85 kg

DRUGS (4)
  1. NITROFURANTOIN MONOHYDRATE MACROCRYSTALS [Suspect]
     Active Substance: NITROFURANTOIN\NITROFURANTOIN MONOHYDRATE
     Indication: Urinary tract infection
     Dosage: FREQUENCY : TWICE A DAY;?
     Route: 048
     Dates: start: 20220329, end: 20220404
  2. Daily EmergenC [Concomitant]
  3. Cranberry tablets/gummies [Concomitant]
  4. Garden of Life Protiotics [Concomitant]

REACTIONS (30)
  - Fatigue [None]
  - Nausea [None]
  - Dizziness [None]
  - Vertigo [None]
  - Asthenia [None]
  - Muscle fatigue [None]
  - Muscle spasms [None]
  - Pain in jaw [None]
  - Dyspnoea [None]
  - Chest pain [None]
  - Headache [None]
  - Migraine [None]
  - Oropharyngeal pain [None]
  - Pain of skin [None]
  - Formication [None]
  - Hypoaesthesia [None]
  - Hypoaesthesia oral [None]
  - Hypoaesthesia oral [None]
  - Dysstasia [None]
  - Hypoaesthesia [None]
  - Paraesthesia [None]
  - Burning sensation [None]
  - Feeling cold [None]
  - Musculoskeletal stiffness [None]
  - Feeling jittery [None]
  - Neuropathy peripheral [None]
  - Impaired quality of life [None]
  - Paraesthesia [None]
  - Temperature regulation disorder [None]
  - Limb discomfort [None]

NARRATIVE: CASE EVENT DATE: 20220405
